FAERS Safety Report 15009569 (Version 1)
Quarter: 2018Q2

REPORT INFORMATION
  Report Type: Spontaneous
  Country: GB (occurrence: GB)
  Receive Date: 20180614
  Receipt Date: 20180614
  Transmission Date: 20180711
  Serious: Yes (Other)
  Sender: FDA-Public Use
  Company Number: GB-TEVA-2018-GB-906245

PATIENT
  Age: 52 Year
  Sex: Female
  Weight: 86 kg

DRUGS (7)
  1. LISINOPRIL. [Suspect]
     Active Substance: LISINOPRIL
     Route: 065
     Dates: start: 20100909
  2. LIDOCAINE. [Concomitant]
     Active Substance: LIDOCAINE
     Dosage: USE AS DIRECTED
     Dates: start: 20180404, end: 20180405
  3. NAPROXEN. [Concomitant]
     Active Substance: NAPROXEN
     Dosage: 3 DOSAGE FORMS DAILY; ALWAYS TAKE WITH FOOD
     Dates: start: 20180322
  4. AMLODIPINE [Concomitant]
     Active Substance: AMLODIPINE BESYLATE
     Dosage: 1 DOSAGE FORMS DAILY;
     Dates: start: 20180414
  5. DEPO-MEDRONE [Concomitant]
     Active Substance: METHYLPREDNISOLONE
     Dosage: USE AS DIRECTED
     Dates: start: 20180404, end: 20180405
  6. COCODAMOL [Concomitant]
     Active Substance: ACETAMINOPHEN\CODEINE PHOSPHATE
     Dosage: TAKE 1 OR 2
     Dates: start: 20180312, end: 20180319
  7. DIAZEPAM. [Concomitant]
     Active Substance: DIAZEPAM
     Indication: MUSCLE SPASMS
     Dosage: 3 DOSAGE FORMS DAILY;
     Dates: start: 20180404

REACTIONS (1)
  - Muscle spasms [Recovered/Resolved]

NARRATIVE: CASE EVENT DATE: 20100909
